FAERS Safety Report 13382815 (Version 1)
Quarter: 2017Q1

REPORT INFORMATION
  Report Type: Report from Study
  Country: ZA (occurrence: ZA)
  Receive Date: 20170329
  Receipt Date: 20170329
  Transmission Date: 20170429
  Serious: Yes (Death, Hospitalization)
  Sender: FDA-Public Use
  Company Number: ZA-AMGEN-ZAFSL2017047737

PATIENT
  Age: 78 Year
  Sex: Female

DRUGS (1)
  1. ARANESP [Suspect]
     Active Substance: DARBEPOETIN ALFA
     Indication: ANAEMIA
     Dosage: 20 UNK, Q2WK
     Route: 065
     Dates: start: 201108, end: 201702

REACTIONS (1)
  - Malaise [Fatal]

NARRATIVE: CASE EVENT DATE: 201702
